FAERS Safety Report 11484908 (Version 1)
Quarter: 2015Q3

REPORT INFORMATION
  Report Type: Spontaneous
  Country: US (occurrence: US)
  Receive Date: 20150903
  Receipt Date: 20150903
  Transmission Date: 20151125
  Serious: No
  Sender: FDA-Public Use
  Company Number: US-ELI_LILLY_AND_COMPANY-US201208009558

PATIENT
  Age: 55 Year
  Sex: Female

DRUGS (5)
  1. LYRICA [Concomitant]
     Active Substance: PREGABALIN
  2. TRAZODONE [Concomitant]
     Active Substance: TRAZODONE HYDROCHLORIDE
  3. CYMBALTA [Suspect]
     Active Substance: DULOXETINE HYDROCHLORIDE
     Dosage: 60 MG, QOD
  4. HYDROCODONE [Concomitant]
     Active Substance: HYDROCODONE
  5. CYMBALTA [Suspect]
     Active Substance: DULOXETINE HYDROCHLORIDE
     Indication: DEPRESSION
     Dosage: 60 MG, QD

REACTIONS (9)
  - Nervousness [Unknown]
  - Drug withdrawal syndrome [Unknown]
  - Memory impairment [Unknown]
  - Fibromyalgia [Unknown]
  - Somnolence [Unknown]
  - Premenstrual syndrome [Unknown]
  - Osteoarthritis [Unknown]
  - Frustration [Unknown]
  - Dizziness [Unknown]
